FAERS Safety Report 23661829 (Version 1)
Quarter: 2024Q1

REPORT INFORMATION
  Report Type: Spontaneous
  Country: US (occurrence: US)
  Receive Date: 20240322
  Receipt Date: 20240322
  Transmission Date: 20240410
  Serious: Yes (Other)
  Sender: FDA-Public Use
  Company Number: US-862174955-ML2024-01814

PATIENT
  Age: 23 Year
  Sex: Female
  Weight: 72.57 kg

DRUGS (5)
  1. CLOBAZAM [Suspect]
     Active Substance: CLOBAZAM
     Indication: Seizure
     Dosage: AS PER PRESCRIPTION
     Route: 048
  2. CLOBAZAM [Suspect]
     Active Substance: CLOBAZAM
     Dosage: 20 MG PER DAY
     Route: 048
  3. CLOBAZAM [Suspect]
     Active Substance: CLOBAZAM
     Dosage: INCREASED THE DOSE BY 10MG/WAS TAKING 30MG A DAY
     Route: 048
  4. LACOSAMIDE [Concomitant]
     Active Substance: LACOSAMIDE
     Indication: Seizure
  5. METFORMIN [Concomitant]
     Active Substance: METFORMIN HYDROCHLORIDE
     Indication: Diabetes mellitus
     Dosage: TAKES METFORMIN 750MG, ONCE A DAY

REACTIONS (6)
  - Seizure [Recovered/Resolved]
  - Loss of consciousness [Recovered/Resolved]
  - Monoplegia [Recovering/Resolving]
  - Fall [Recovered/Resolved]
  - Drug ineffective [Unknown]
  - Product substitution issue [Unknown]

NARRATIVE: CASE EVENT DATE: 20240201
